FAERS Safety Report 20810395 (Version 1)
Quarter: 2022Q2

REPORT INFORMATION
  Report Type: Spontaneous
  Country: US (occurrence: US)
  Receive Date: 20220510
  Receipt Date: 20220510
  Transmission Date: 20220721
  Serious: No
  Sender: FDA-Public Use
  Company Number: US-OYSTER POINT PHARMA, INC.-2022OYS00246

PATIENT
  Age: 6 Decade
  Sex: Female

DRUGS (2)
  1. TYRVAYA [Suspect]
     Active Substance: VARENICLINE TARTRATE
     Indication: Dry eye
     Dosage: UNK UNK, 2X/DAY
     Route: 045
     Dates: start: 202112
  2. UNSPECIFIED SEVERAL MEDICATIONS [Concomitant]

REACTIONS (3)
  - Decreased appetite [Not Recovered/Not Resolved]
  - Food craving [Not Recovered/Not Resolved]
  - Insomnia [Not Recovered/Not Resolved]
